FAERS Safety Report 10130221 (Version 3)
Quarter: 2014Q2

REPORT INFORMATION
  Report Type: Spontaneous
  Country: US (occurrence: US)
  Receive Date: 20140428
  Receipt Date: 20140528
  Transmission Date: 20141212
  Serious: Yes (Other)
  Sender: FDA-Public Use
  Company Number: US-AMGEN-USASP2013088470

PATIENT
  Age: 37 Year
  Sex: Female
  Weight: 89.34 kg

DRUGS (7)
  1. NEULASTA [Suspect]
     Indication: BREAST CANCER
     Dosage: UNK UNK, EVERY OTHER WEEK AFTER CHEMOTHERAPY
     Route: 058
     Dates: start: 20131017, end: 20140123
  2. ADRIAMYCIN                         /00330901/ [Concomitant]
     Indication: BREAST CANCER
     Dosage: UNK UNK, Q2WK
     Route: 065
     Dates: start: 20131017
  3. CYTOXAN [Concomitant]
     Indication: BREAST CANCER
     Dosage: UNK UNK, Q2WK
     Route: 065
     Dates: start: 20131017
  4. TAXOL [Concomitant]
     Indication: BREAST CANCER
     Dosage: UNK UNK, Q2WK
     Route: 065
     Dates: start: 20131212
  5. WELLBUTRIN [Concomitant]
     Indication: DEPRESSION
     Dosage: 200 MG, DAILY
     Route: 048
     Dates: start: 2004
  6. CELEXA                             /00582602/ [Concomitant]
     Indication: DEPRESSION
     Dosage: 40 MG, DAILY
     Route: 048
     Dates: start: 2004
  7. INFLUENZA [Concomitant]
     Dosage: UNK

REACTIONS (3)
  - Breast lump removal [Unknown]
  - Medical device implantation [Unknown]
  - Breast cancer recurrent [Unknown]
